FAERS Safety Report 9160041 (Version 2)
Quarter: 2013Q1

REPORT INFORMATION
  Report Type: Spontaneous
  Country: DE (occurrence: GB)
  Receive Date: 20130313
  Receipt Date: 20130327
  Transmission Date: 20140127
  Serious: Yes (Disabling, Other)
  Sender: FDA-Public Use
  Company Number: GB-FRI-1000041370

PATIENT
  Age: 77 Year
  Sex: Female
  Weight: 56 kg

DRUGS (9)
  1. MEMANTINE [Suspect]
     Indication: DEMENTIA ALZHEIMER^S TYPE
     Dosage: 5 MG
     Route: 048
     Dates: start: 20121105
  2. MEMANTINE [Suspect]
     Dosage: 10 MG
     Route: 048
  3. MEMANTINE [Suspect]
     Dosage: 15 MG
     Route: 048
  4. MEMANTINE [Suspect]
     Indication: DEMENTIA ALZHEIMER^S TYPE
     Dosage: 20 MG
     Route: 048
     Dates: end: 20121210
  5. MEMANTINE [Suspect]
     Indication: DEMENTIA ALZHEIMER^S TYPE
     Dosage: 5 MG
     Route: 048
     Dates: start: 20121221, end: 20130103
  6. ASPIRIN [Concomitant]
     Indication: CEREBROVASCULAR ACCIDENT
     Dosage: 75 MG
     Route: 048
  7. SIMVASTATIN [Concomitant]
     Indication: CEREBROVASCULAR ACCIDENT
     Dosage: 40 MG
     Route: 048
  8. TOLTERODINE [Concomitant]
     Dosage: 4 MG
     Route: 048
  9. CITALOPRAM [Concomitant]
     Indication: ANXIETY
     Dosage: 20 MG
     Route: 048

REACTIONS (5)
  - Mobility decreased [Recovered/Resolved]
  - Dystonia [Recovered/Resolved]
  - Musculoskeletal stiffness [Recovered/Resolved]
  - Hypertonia [Recovered/Resolved]
  - Disturbance in attention [Unknown]
